FAERS Safety Report 13667032 (Version 1)
Quarter: 2017Q2

REPORT INFORMATION
  Report Type: Spontaneous
  Country: US (occurrence: US)
  Receive Date: 20170619
  Receipt Date: 20170619
  Transmission Date: 20170830
  Serious: No
  Sender: FDA-Public Use
  Company Number: US-ROCHE-633169

PATIENT
  Sex: Female
  Weight: 45.4 kg

DRUGS (2)
  1. XELODA [Suspect]
     Active Substance: CAPECITABINE
     Indication: BREAST CANCER
     Dosage: 2500 MG DAY X 1 WEEK THEN OFF 1 WEEK
     Route: 048
  2. XELODA [Suspect]
     Active Substance: CAPECITABINE
     Dosage: INCREASED DOSAGE, 1000 MG AM AND 1500 MG PM
     Route: 048
     Dates: start: 20090129, end: 20091120

REACTIONS (4)
  - Liver function test increased [Unknown]
  - Drug ineffective [Unknown]
  - Palmar-plantar erythrodysaesthesia syndrome [Not Recovered/Not Resolved]
  - Diarrhoea [Unknown]
